FAERS Safety Report 14490214 (Version 2)
Quarter: 2018Q1

REPORT INFORMATION
  Report Type: Spontaneous
  Country: GB (occurrence: GB)
  Receive Date: 20180206
  Receipt Date: 20180213
  Transmission Date: 20180509
  Serious: Yes (Death, Other)
  Sender: FDA-Public Use
  Company Number: GB-JNJFOC-20170914195

PATIENT
  Age: 32 Year
  Sex: Female
  Weight: 66 kg

DRUGS (5)
  1. FERROUS SULFATE. [Suspect]
     Active Substance: FERROUS SULFATE
     Indication: ANAEMIA
     Route: 048
  2. IBUPROFEN. [Suspect]
     Active Substance: IBUPROFEN
     Route: 048
  3. IBUPROFEN. [Suspect]
     Active Substance: IBUPROFEN
     Indication: PAIN
     Route: 048
  4. PARACETAMOL [Interacting]
     Active Substance: ACETAMINOPHEN
     Indication: PAIN
     Route: 048
  5. ARAVA [Suspect]
     Active Substance: LEFLUNOMIDE
     Indication: RHEUMATOID ARTHRITIS
     Route: 048
     Dates: start: 2013, end: 20171001

REACTIONS (4)
  - Foetal exposure during pregnancy [Fatal]
  - Foetal death [Fatal]
  - Exposure during pregnancy [Unknown]
  - Drug interaction [Unknown]

NARRATIVE: CASE EVENT DATE: 20170123
